FAERS Safety Report 6745477-1 (Version None)
Quarter: 2010Q2

REPORT INFORMATION
  Report Type: 
  Country: None (occurrence: None)
  Receive Date: 20100528
  Receipt Date: 20100524
  Transmission Date: 20101027
  Serious: Yes (Other)
  Sender: FDA-Public Use
  Company Number: UY-BAYER-201023493NA

PATIENT
  Age: 48 Year
  Sex: Female

DRUGS (6)
  1. BETASERON [Suspect]
     Indication: RELAPSING-REMITTING MULTIPLE SCLEROSIS
     Dosage: TOTAL DAILY DOSE: 6 MIU
     Route: 058
     Dates: start: 20100408
  2. BETASERON [Suspect]
     Route: 058
     Dates: start: 20070610, end: 20090817
  3. BETASERON [Suspect]
     Route: 058
     Dates: start: 20040129, end: 20040217
  4. BETASERON [Suspect]
     Route: 058
     Dates: start: 20030806, end: 20030815
  5. BETASERON [Suspect]
     Route: 058
     Dates: start: 20030327, end: 20030404
  6. ALEVE (CAPLET) [Concomitant]

REACTIONS (4)
  - CUBITAL TUNNEL SYNDROME [None]
  - FEELING ABNORMAL [None]
  - IRRITABILITY [None]
  - NAUSEA [None]
